FAERS Safety Report 12849949 (Version 3)
Quarter: 2017Q4

REPORT INFORMATION
  Report Type: Spontaneous
  Country: US (occurrence: US)
  Receive Date: 20161014
  Receipt Date: 20171027
  Transmission Date: 20180320
  Serious: No
  Sender: FDA-Public Use
  Company Number: US-ROCHE-1780141

PATIENT
  Sex: Female

DRUGS (3)
  1. DIGOXIN. [Concomitant]
     Active Substance: DIGOXIN
  2. ESBRIET [Suspect]
     Active Substance: PIRFENIDONE
     Indication: PRODUCT USED FOR UNKNOWN INDICATION
     Route: 048
     Dates: start: 20160525
  3. ATENOLOL. [Concomitant]
     Active Substance: ATENOLOL

REACTIONS (3)
  - Drug dose omission [Unknown]
  - Memory impairment [Unknown]
  - Fatigue [Unknown]
